FAERS Safety Report 9945644 (Version 1)
Quarter: 2014Q1

REPORT INFORMATION
  Report Type: Report from Study
  Country: US (occurrence: US)
  Receive Date: 20140303
  Receipt Date: 20140303
  Transmission Date: 20141002
  Serious: No
  Sender: FDA-Public Use
  Company Number: US-ABBVIE-13P-163-1049254-00

PATIENT
  Age: 39 Year
  Sex: Female
  Weight: 94.89 kg

DRUGS (11)
  1. HUMIRA [Suspect]
     Indication: CROHN^S DISEASE
     Dates: start: 20130124, end: 20130124
  2. HUMIRA [Suspect]
     Dates: start: 20130207, end: 20130207
  3. PREDNISONE [Concomitant]
     Indication: CROHN^S DISEASE
     Dates: end: 201301
  4. PROPANOLOL ER [Concomitant]
     Indication: HYPERTENSION
  5. HYDROCHLOROTHIAZIDE [Concomitant]
     Indication: HYPERTENSION
  6. ETODOLAC [Concomitant]
     Indication: PAIN
  7. ETODOLAC [Concomitant]
     Indication: INTERVERTEBRAL DISC PROTRUSION
  8. HYDROCODONE [Concomitant]
     Indication: SWELLING
  9. HYDROCODONE [Concomitant]
     Indication: BONE SWELLING
  10. HYDROCODONE [Concomitant]
     Indication: PAIN
  11. HYDROCODONE [Concomitant]
     Indication: INTERVERTEBRAL DISC PROTRUSION

REACTIONS (3)
  - Decreased appetite [Not Recovered/Not Resolved]
  - Abdominal pain upper [Not Recovered/Not Resolved]
  - Diarrhoea [Not Recovered/Not Resolved]
